FAERS Safety Report 18567693 (Version 1)
Quarter: 2020Q4

REPORT INFORMATION
  Report Type: Spontaneous
  Country: US (occurrence: US)
  Receive Date: 20201202
  Receipt Date: 20201202
  Transmission Date: 20210114
  Serious: No
  Sender: FDA-Public Use
  Company Number: US-JNJFOC-20201143347

PATIENT
  Sex: Female

DRUGS (12)
  1. PEPCID [Suspect]
     Active Substance: FAMOTIDINE
     Indication: GASTROOESOPHAGEAL REFLUX DISEASE
     Route: 065
  2. PEPCID [Suspect]
     Active Substance: FAMOTIDINE
     Indication: ULCER
  3. PEPCID [Suspect]
     Active Substance: FAMOTIDINE
     Indication: INTESTINAL METAPLASIA
  4. ZANTAC [Concomitant]
     Active Substance: RANITIDINE HYDROCHLORIDE
     Indication: OESOPHAGITIS
  5. ZANTAC [Concomitant]
     Active Substance: RANITIDINE HYDROCHLORIDE
     Indication: ULCER
  6. PEPCID [Suspect]
     Active Substance: FAMOTIDINE
     Indication: GASTRITIS
  7. ZANTAC [Concomitant]
     Active Substance: RANITIDINE HYDROCHLORIDE
     Indication: GASTROOESOPHAGEAL REFLUX DISEASE
     Route: 065
  8. PEPCID [Suspect]
     Active Substance: FAMOTIDINE
     Indication: HIATUS HERNIA
  9. PEPCID [Suspect]
     Active Substance: FAMOTIDINE
     Indication: OESOPHAGITIS
  10. ZANTAC [Concomitant]
     Active Substance: RANITIDINE HYDROCHLORIDE
     Indication: HIATUS HERNIA
  11. ZANTAC [Concomitant]
     Active Substance: RANITIDINE HYDROCHLORIDE
     Indication: GASTRITIS
  12. ZANTAC [Concomitant]
     Active Substance: RANITIDINE HYDROCHLORIDE
     Indication: INTESTINAL METAPLASIA

REACTIONS (2)
  - Product use in unapproved indication [Unknown]
  - Exposure during pregnancy [Unknown]
